FAERS Safety Report 21530732 (Version 1)
Quarter: 2022Q4

REPORT INFORMATION
  Report Type: Spontaneous
  Country: US (occurrence: None)
  Receive Date: 20221029
  Receipt Date: 20221029
  Transmission Date: 20230112
  Serious: Yes (Other)
  Sender: FDA-Public Use
  Company Number: None

PATIENT
  Age: 55 Week
  Sex: Female

DRUGS (5)
  1. MOUNJARO [Suspect]
     Active Substance: TIRZEPATIDE
  2. IBUPROFEN [Concomitant]
     Active Substance: IBUPROFEN
  3. LEXAPRO [Concomitant]
     Active Substance: ESCITALOPRAM OXALATE
  4. Atorvadtatin [Concomitant]
  5. AMBIEN [Concomitant]
     Active Substance: ZOLPIDEM TARTRATE

REACTIONS (10)
  - Palpitations [None]
  - Dry mouth [None]
  - Insomnia [None]
  - Headache [None]
  - Nausea [None]
  - Neck pain [None]
  - Myalgia [None]
  - Pain of skin [None]
  - Hyperaesthesia [None]
  - Hypophagia [None]

NARRATIVE: CASE EVENT DATE: 20221028
